FAERS Safety Report 5204399-8 (Version None)
Quarter: 2007Q1

REPORT INFORMATION
  Report Type: 
  Country: None (occurrence: None)
  Receive Date: 20070105
  Receipt Date: 20070101
  Transmission Date: 20070707
  Serious: Yes (Hospitalization)
  Sender: FDA-Public Use
  Company Number: 1513581USA

PATIENT
  Age: 11 Year
  Sex: Female

DRUGS (3)
  1. VALPROIC ACID [Suspect]
     Indication: ABNORMAL BEHAVIOUR
  2. RISPERIDONE [Concomitant]
  3. ATOMOXETINE [Concomitant]

REACTIONS (7)
  - CHOREA [None]
  - DELIRIUM [None]
  - ELECTROENCEPHALOGRAM ABNORMAL [None]
  - ENCEPHALOPATHY [None]
  - HYPERGLYCAEMIA [None]
  - METABOLIC DISORDER [None]
  - NO THERAPEUTIC RESPONSE [None]
